FAERS Safety Report 5394091-1 (Version None)
Quarter: 2007Q3

REPORT INFORMATION
  Report Type: 
  Country: None (occurrence: None)
  Receive Date: 20070723
  Receipt Date: 20070307
  Transmission Date: 20080115
  Serious: No
  Sender: FDA-Public Use
  Company Number: A0642217A

PATIENT
  Age: 50 Year
  Sex: Female

DRUGS (6)
  1. AVANDIA [Suspect]
     Dosage: 2MG TWICE PER DAY
     Route: 048
     Dates: start: 20050201
  2. NORVASC [Concomitant]
  3. COREG [Concomitant]
  4. LIBRIUM [Concomitant]
  5. ALBUTEROL [Concomitant]
  6. DIGOXIN [Concomitant]

REACTIONS (3)
  - FATIGUE [None]
  - OEDEMA [None]
  - WEIGHT INCREASED [None]
